FAERS Safety Report 13332569 (Version 1)
Quarter: 2017Q1

REPORT INFORMATION
  Report Type: Spontaneous
  Country: JP (occurrence: JP)
  Receive Date: 20170314
  Receipt Date: 20170314
  Transmission Date: 20170428
  Serious: Yes (Other)
  Sender: FDA-Public Use
  Company Number: JP-CONCORDIA PHARMACEUTICALS INC.-E2B_00008069

PATIENT
  Age: 38 Month

DRUGS (1)
  1. ZONISAMIDE CAPSULE [Suspect]
     Active Substance: ZONISAMIDE
     Indication: CONVULSION PROPHYLAXIS
     Route: 048

REACTIONS (2)
  - Speech disorder developmental [Not Recovered/Not Resolved]
  - Motor developmental delay [Not Recovered/Not Resolved]
